FAERS Safety Report 8163290-8 (Version None)
Quarter: 2012Q1

REPORT INFORMATION
  Report Type: 
  Country: None (occurrence: None)
  Receive Date: 20120224
  Receipt Date: 20110818
  Transmission Date: 20120608
  Serious: No
  Sender: FDA-Public Use
  Company Number: US-PFIZER INC-K201100974

PATIENT
  Sex: Female
  Weight: 58.957 kg

DRUGS (1)
  1. FLECTOR [Suspect]
     Indication: ARTHRALGIA
     Dosage: UNK PATCH, UNK
     Route: 061
     Dates: start: 20100801, end: 20100801

REACTIONS (4)
  - PRURITUS [None]
  - APPLICATION SITE ERYTHEMA [None]
  - APPLICATION SITE REACTION [None]
  - DRUG INEFFECTIVE [None]
